FAERS Safety Report 16975045 (Version 1)
Quarter: 2019Q4

REPORT INFORMATION
  Report Type: Spontaneous
  Country: JP (occurrence: JP)
  Receive Date: 20191030
  Receipt Date: 20191030
  Transmission Date: 20200122
  Serious: Yes (Death, Other)
  Sender: FDA-Public Use
  Company Number: JP-KYOWAKIRIN-2017AKK001159

PATIENT

DRUGS (1)
  1. POTELIGEO [Suspect]
     Active Substance: MOGAMULIZUMAB-KPKC
     Indication: ADULT T-CELL LYMPHOMA/LEUKAEMIA
     Dosage: UNK
     Route: 041

REACTIONS (8)
  - Thrombotic microangiopathy [Unknown]
  - Headache [Recovered/Resolved]
  - Death [Fatal]
  - Haematochezia [Unknown]
  - Pyrexia [Recovered/Resolved]
  - Graft versus host disease [Unknown]
  - Encephalitis viral [Unknown]
  - Diarrhoea [Recovering/Resolving]
